FAERS Safety Report 11195489 (Version 1)
Quarter: 2015Q2

REPORT INFORMATION
  Report Type: Spontaneous
  Country: US (occurrence: None)
  Receive Date: 20150615
  Receipt Date: 20150615
  Transmission Date: 20150821
  Serious: No
  Sender: FDA-Public Use
  Company Number: None

PATIENT
  Age: 65 Year
  Sex: Female
  Weight: 84.82 kg

DRUGS (12)
  1. COREG [Concomitant]
     Active Substance: CARVEDILOL
  2. GENERIC BAYER [Concomitant]
  3. CLONAZEPAM. [Concomitant]
     Active Substance: CLONAZEPAM
  4. GENERIC ZYRTEC [Concomitant]
  5. NUVIGIL [Concomitant]
     Active Substance: ARMODAFINIL
  6. METFORMIN [Concomitant]
     Active Substance: METFORMIN HYDROCHLORIDE
  7. GENERIC IRON [Concomitant]
  8. SYNTHROID [Concomitant]
     Active Substance: LEVOTHYROXINE SODIUM
  9. LISINOPRIL. [Suspect]
     Active Substance: LISINOPRIL
     Indication: HYPERTENSION
     Route: 048
     Dates: end: 20150414
  10. CYMBALTA [Concomitant]
     Active Substance: DULOXETINE HYDROCHLORIDE
  11. FLUOCINOLONE [Concomitant]
     Active Substance: FLUOCINOLONE
  12. ALAWAY EYE DROPS [Concomitant]

REACTIONS (7)
  - Confusional state [None]
  - Impaired driving ability [None]
  - Fatigue [None]
  - Head discomfort [None]
  - Memory impairment [None]
  - Dizziness [None]
  - Aphasia [None]

NARRATIVE: CASE EVENT DATE: 20150320
